FAERS Safety Report 17839087 (Version 1)
Quarter: 2020Q2

REPORT INFORMATION
  Report Type: Spontaneous
  Country: US (occurrence: US)
  Receive Date: 20200528
  Receipt Date: 20200528
  Transmission Date: 20200714
  Serious: Yes (Disabling)
  Sender: FDA-Public Use
  Company Number: None

PATIENT
  Age: 72 Year
  Sex: Female
  Weight: 103.5 kg

DRUGS (11)
  1. VITAMIN D3 [Concomitant]
     Active Substance: CHOLECALCIFEROL
  2. VITAMIN B1 [Concomitant]
     Active Substance: THIAMINE HYDROCHLORIDE
  3. NATURAL SUPPLIMENTS [Concomitant]
  4. PROBIOTICS [Concomitant]
     Active Substance: PROBIOTICS NOS
  5. POTASSIUM [Concomitant]
     Active Substance: POTASSIUM
  6. VITAMIN C [Concomitant]
     Active Substance: ASCORBIC ACID
  7. NP THYROID [Suspect]
     Active Substance: LEVOTHYROXINE\LIOTHYRONINE
     Indication: THYROID HORMONES DECREASED
     Dosage: ?          QUANTITY:30 ONE TABLET;?
     Route: 048
     Dates: start: 20190528, end: 20200527
  8. VITAMIN E [Concomitant]
     Active Substance: .ALPHA.-TOCOPHEROL
  9. MINERALS [Concomitant]
     Active Substance: MINERALS
  10. HYDROCHLOROTHIAZIDE 25MG [Concomitant]
     Active Substance: HYDROCHLOROTHIAZIDE
  11. ELECTROLITES [Concomitant]

REACTIONS (11)
  - Skin disorder [None]
  - Fatigue [None]
  - Muscular weakness [None]
  - Peripheral swelling [None]
  - Temperature intolerance [None]
  - Madarosis [None]
  - Recalled product [None]
  - Alopecia [None]
  - Ear discomfort [None]
  - Dizziness [None]
  - Eyelid thickening [None]

NARRATIVE: CASE EVENT DATE: 20200527
